FAERS Safety Report 8486086-6 (Version None)
Quarter: 2012Q2

REPORT INFORMATION
  Report Type: 
  Country: None (occurrence: None)
  Receive Date: 20120626
  Receipt Date: 20120614
  Transmission Date: 20120825
  Serious: Yes (Life-Threatening)
  Sender: FDA-Public Use
  Company Number: 1321514

PATIENT
  Age: 56 Year
  Sex: Female

DRUGS (1)
  1. DOBUTAMINE HYDROCHLORIDE [Suspect]
     Indication: STRESS ECHOCARDIOGRAM
     Dosage: 30 MICROG/KG/MIN, UNKNOWN, INTRAVENOUS
     Route: 042

REACTIONS (4)
  - EJECTION FRACTION DECREASED [None]
  - TROPONIN I INCREASED [None]
  - STRESS CARDIOMYOPATHY [None]
  - LEFT VENTRICULAR DYSFUNCTION [None]
